FAERS Safety Report 13899831 (Version 2)
Quarter: 2017Q4

REPORT INFORMATION
  Report Type: Report from Study
  Country: CO (occurrence: CO)
  Receive Date: 20170823
  Receipt Date: 20171009
  Transmission Date: 20180320
  Serious: Yes (Other)
  Sender: FDA-Public Use
  Company Number: CO-REGENERON PHARMACEUTICALS, INC.-2017-20565

PATIENT

DRUGS (3)
  1. EYLEA [Suspect]
     Active Substance: AFLIBERCEPT
     Dosage: 2 MG, Q2MON
     Route: 031
     Dates: start: 20131115
  2. EYLEA [Suspect]
     Active Substance: AFLIBERCEPT
     Dosage: UNK, ONCE
     Route: 031
     Dates: start: 20170922, end: 20170922
  3. EYLEA [Suspect]
     Active Substance: AFLIBERCEPT
     Indication: AGE-RELATED MACULAR DEGENERATION
     Dosage: ONE INJECTION EVERY MONTH FOR 3 MONTHS
     Dates: start: 20170705, end: 20170705

REACTIONS (3)
  - Macular scar [Not Recovered/Not Resolved]
  - Off label use [Recovering/Resolving]
  - Inappropriate schedule of drug administration [Recovering/Resolving]
